FAERS Safety Report 25535570 (Version 2)
Quarter: 2025Q3

REPORT INFORMATION
  Report Type: Report from Study
  Country: US (occurrence: US)
  Receive Date: 20250709
  Receipt Date: 20250717
  Transmission Date: 20251021
  Serious: Yes (Hospitalization, Other)
  Sender: ABBVIE
  Company Number: US-ABBVIE-6361215

PATIENT
  Age: 76 Year
  Sex: Male

DRUGS (1)
  1. RINVOQ [Suspect]
     Active Substance: UPADACITINIB
     Indication: Crohn^s disease
     Route: 048
     Dates: start: 20250702, end: 20250706

REACTIONS (8)
  - Sepsis [Not Recovered/Not Resolved]
  - Delirium [Unknown]
  - Chills [Unknown]
  - Hypertension [Unknown]
  - Pneumonia [Unknown]
  - Renal failure [Unknown]
  - Blood creatinine abnormal [Unknown]
  - Myocardial infarction [Unknown]

NARRATIVE: CASE EVENT DATE: 20250701
